FAERS Safety Report 5189678-5 (Version None)
Quarter: 2006Q4

REPORT INFORMATION
  Report Type: 
  Country: None (occurrence: None)
  Receive Date: 20061221
  Receipt Date: 20051117
  Transmission Date: 20070319
  Serious: No
  Sender: FDA-Public Use
  Company Number: US-AMGEN-US158378

PATIENT
  Sex: Male

DRUGS (2)
  1. ENBREL [Suspect]
     Indication: PSORIASIS
     Route: 065
     Dates: start: 20040415, end: 20050923
  2. METHOTREXATE [Concomitant]
     Dates: start: 19940101, end: 20050801

REACTIONS (4)
  - DERMATITIS [None]
  - PRURITUS [None]
  - RASH MACULAR [None]
  - URTICARIA [None]
